FAERS Safety Report 17756083 (Version 1)
Quarter: 2020Q2

REPORT INFORMATION
  Report Type: Spontaneous
  Country: US (occurrence: US)
  Receive Date: 20200507
  Receipt Date: 20200507
  Transmission Date: 20200714
  Serious: Yes (Hospitalization)
  Sender: FDA-Public Use
  Company Number: None

PATIENT
  Age: 36 Year
  Sex: Female
  Weight: 88 kg

DRUGS (1)
  1. ASPIRIN. [Suspect]
     Active Substance: ASPIRIN
     Dates: end: 20191215

REACTIONS (9)
  - Surgical procedure repeated [None]
  - Treatment noncompliance [None]
  - Clinical trial participant [None]
  - Breast swelling [None]
  - Iron deficiency anaemia [None]
  - Pathogen resistance [None]
  - Erythema [None]
  - Product dose omission [None]
  - Mammoplasty [None]

NARRATIVE: CASE EVENT DATE: 20191216
